FAERS Safety Report 12472920 (Version 1)
Quarter: 2016Q2

REPORT INFORMATION
  Report Type: Report from Study
  Country: US (occurrence: US)
  Receive Date: 20160616
  Receipt Date: 20160616
  Transmission Date: 20160815
  Serious: No
  Sender: FDA-Public Use
  Company Number: US-MDT-ADR-2016-01110

PATIENT
  Age: 57 Year
  Sex: Female

DRUGS (6)
  1. COMPOUNDED BACLOFEN [Suspect]
     Active Substance: BACLOFEN
     Dosage: 999.7 MCG/DAY
     Route: 037
     Dates: end: 20131231
  2. DILAUDID [Suspect]
     Active Substance: HYDROMORPHONE HYDROCHLORIDE
     Dosage: 99.97MCG/DAY
     Route: 037
     Dates: end: 20131231
  3. CLONIDINE. [Suspect]
     Active Substance: CLONIDINE
     Dosage: 49.99 MCG/DAY
     Route: 037
     Dates: end: 20131231
  4. COMPOUNDED BACLOFEN [Suspect]
     Active Substance: BACLOFEN
     Route: 037
     Dates: start: 20131231
  5. DILAUDID [Suspect]
     Active Substance: HYDROMORPHONE HYDROCHLORIDE
     Route: 037
     Dates: start: 20131231
  6. CLONIDINE. [Suspect]
     Active Substance: CLONIDINE
     Route: 037
     Dates: start: 20131231

REACTIONS (4)
  - Asthenia [Recovered/Resolved]
  - Insomnia [Recovered/Resolved]
  - Mental status changes [Recovered/Resolved]
  - Feeling abnormal [Recovered/Resolved]

NARRATIVE: CASE EVENT DATE: 20131231
